FAERS Safety Report 25877370 (Version 3)
Quarter: 2025Q4

REPORT INFORMATION
  Report Type: Spontaneous
  Country: US (occurrence: US)
  Receive Date: 20251003
  Receipt Date: 20251023
  Transmission Date: 20260118
  Serious: No
  Sender: ROCHE
  Company Number: US-ROCHE-10000402366

PATIENT
  Age: 16 Year
  Sex: Female
  Weight: 56.69 kg

DRUGS (3)
  1. XOLAIR [Suspect]
     Active Substance: OMALIZUMAB
     Indication: Food allergy
     Dosage: TWO 300 MG INJECTIONS
     Route: 058
     Dates: start: 202309
  2. XOLAIR [Suspect]
     Active Substance: OMALIZUMAB
     Indication: Anaphylactic reaction
     Route: 058
     Dates: start: 202502
  3. FLOVENT [Concomitant]
     Active Substance: FLUTICASONE PROPIONATE
     Indication: Asthma
     Dosage: AS NEEDED, INHALER
     Route: 055
     Dates: start: 201206

REACTIONS (6)
  - Underdose [Unknown]
  - Product use complaint [Unknown]
  - Device issue [Unknown]
  - No adverse event [Unknown]
  - Device defective [Unknown]
  - Drug delivery system malfunction [Unknown]

NARRATIVE: CASE EVENT DATE: 20250930
